FAERS Safety Report 6039762-9 (Version None)
Quarter: 2009Q1

REPORT INFORMATION
  Report Type: 
  Country: None (occurrence: None)
  Receive Date: 20090116
  Receipt Date: 20090105
  Transmission Date: 20090719
  Serious: Yes (Hospitalization)
  Sender: FDA-Public Use
  Company Number: JP-SANOFI-SYNTHELABO-F01200900004

PATIENT
  Sex: Female
  Weight: 61 kg

DRUGS (9)
  1. DIAZEPAM [Concomitant]
     Dosage: 2 MG
     Route: 048
     Dates: start: 20070327, end: 20080630
  2. TERNELIN [Concomitant]
     Dosage: 1 MG
     Route: 048
     Dates: start: 20070327, end: 20080630
  3. SELBEX [Concomitant]
     Route: 048
     Dates: start: 20070327, end: 20080630
  4. ALDACTONE [Concomitant]
     Indication: HYPERTENSION
     Dosage: 25 MG
     Route: 048
     Dates: start: 20070327, end: 20080630
  5. AMLODIPINE [Concomitant]
     Indication: HYPERTENSION
     Dosage: 5 MG
     Route: 048
     Dates: start: 20070327
  6. NU-LOTAN [Concomitant]
     Indication: HYPERTENSION
     Dosage: 50 MG
     Route: 048
     Dates: start: 20070327
  7. ALMAR [Concomitant]
     Indication: HYPERTENSION
     Route: 048
     Dates: start: 20070327
  8. TICLOPIDINE HCL [Concomitant]
     Dosage: 200 MG
     Route: 065
     Dates: start: 20020521, end: 20070115
  9. CLOPIDOGREL [Suspect]
     Indication: CEREBROVASCULAR DISORDER
     Dosage: 50 MG
     Route: 048
     Dates: start: 20070327, end: 20080630

REACTIONS (1)
  - EMBOLIC STROKE [None]
